FAERS Safety Report 21873243 (Version 2)
Quarter: 2023Q1

REPORT INFORMATION
  Report Type: Spontaneous
  Country: US (occurrence: US)
  Receive Date: 20230117
  Receipt Date: 20230203
  Transmission Date: 20230417
  Serious: No
  Sender: FDA-Public Use
  Company Number: US-PFIZER INC-202300016251

PATIENT
  Age: 79 Year
  Sex: Male
  Weight: 43.09 kg

DRUGS (6)
  1. PAXLOVID [Suspect]
     Active Substance: NIRMATRELVIR\RITONAVIR
     Indication: COVID-19 treatment
     Dosage: [PF-07321332 300 MG]/[RITONAVIR 100 MG]; 2X/DAY
     Route: 048
     Dates: start: 20230107, end: 20230112
  2. AMLODIPINE [Concomitant]
     Active Substance: AMLODIPINE BESYLATE
     Indication: Hypertension
     Dosage: 5-10MG ONCE A DAY BY MOUTH
     Route: 048
  3. CARVEDILOL [Concomitant]
     Active Substance: CARVEDILOL
     Indication: Hypertension
     Dosage: 1 TABLET BY MOUTH TWICE A DAY WITH BREAKFAST AND DINNER
     Route: 048
  4. CHLORTHALIDONE [Concomitant]
     Active Substance: CHLORTHALIDONE
     Indication: Hypertension
     Dosage: 1/2 TABLET EVERY OTHER DAY
  5. VITAMIN D3 [Concomitant]
     Active Substance: CHOLECALCIFEROL
     Indication: Vitamin supplementation
     Dosage: 2000 UNITS BY MOUTH DAILY. SAYS TO TAKE 1, BUT HE TAKES 3 DURING THE WINTER
     Route: 048
  6. FLOVENT [Concomitant]
     Active Substance: FLUTICASONE PROPIONATE
     Indication: Dyspnoea
     Dosage: INHALER 2 PUFFS INTO THE LUNGS TWICE DAILY

REACTIONS (1)
  - Abnormal faeces [Recovered/Resolved]

NARRATIVE: CASE EVENT DATE: 20230107
